FAERS Safety Report 9885829 (Version 1)
Quarter: 2014Q1

REPORT INFORMATION
  Report Type: Spontaneous
  Country: US (occurrence: US)
  Receive Date: 20140210
  Receipt Date: 20140210
  Transmission Date: 20141002
  Serious: No
  Sender: FDA-Public Use
  Company Number: US-ENDO PHARMACEUTICALS INC.-FELO20130001

PATIENT
  Sex: Male

DRUGS (2)
  1. FELODIPINE ER TABLETS 10MG [Suspect]
     Indication: HYPERTENSION
     Route: 048
     Dates: start: 2013
  2. FELODIPINE [Concomitant]
     Indication: HYPERTENSION
     Dosage: UNK
     Route: 048
     Dates: end: 2013

REACTIONS (1)
  - Dermatitis herpetiformis [Not Recovered/Not Resolved]
